FAERS Safety Report 24275123 (Version 2)
Quarter: 2024Q3

REPORT INFORMATION
  Report Type: Spontaneous
  Country: ET (occurrence: ET)
  Receive Date: 20240902
  Receipt Date: 20240910
  Transmission Date: 20241016
  Serious: Yes (Other)
  Sender: BRISTOL MYERS SQUIBB
  Company Number: ET-BRISTOL-MYERS SQUIBB COMPANY-2024-136902

PATIENT
  Age: 45 Year
  Sex: Male

DRUGS (11)
  1. NIVOLUMAB [Suspect]
     Active Substance: NIVOLUMAB
     Indication: Malignant melanoma
  2. NIVOLUMAB [Suspect]
     Active Substance: NIVOLUMAB
     Dates: start: 20240203
  3. NIVOLUMAB [Suspect]
     Active Substance: NIVOLUMAB
     Dates: start: 20240224
  4. NIVOLUMAB [Suspect]
     Active Substance: NIVOLUMAB
     Dates: end: 20240708
  5. NIVOLUMAB [Suspect]
     Active Substance: NIVOLUMAB
     Dates: start: 20240722
  6. IPILIMUMAB [Suspect]
     Active Substance: IPILIMUMAB
     Indication: Malignant melanoma
     Dates: start: 20240203
  7. IPILIMUMAB [Suspect]
     Active Substance: IPILIMUMAB
     Dates: start: 20240224
  8. CISPLATIN [Suspect]
     Active Substance: CISPLATIN
     Indication: Malignant melanoma
  9. DACARBAZINE [Suspect]
     Active Substance: DACARBAZINE
     Indication: Malignant melanoma
  10. DACARBAZINE [Suspect]
     Active Substance: DACARBAZINE
     Dates: start: 20240203
  11. DACARBAZINE [Suspect]
     Active Substance: DACARBAZINE
     Dates: start: 20240224

REACTIONS (3)
  - Iridocyclitis [Recovered/Resolved]
  - Malignant neoplasm progression [Recovering/Resolving]
  - Pericardial effusion [Not Recovered/Not Resolved]
